FAERS Safety Report 17296210 (Version 1)
Quarter: 2020Q1

REPORT INFORMATION
  Report Type: Spontaneous
  Country: US (occurrence: US)
  Receive Date: 20200121
  Receipt Date: 20200121
  Transmission Date: 20200409
  Serious: Yes (Hospitalization)
  Sender: FDA-Public Use
  Company Number: US-BAXTER-2020BAX000838

PATIENT
  Age: 72 Year
  Sex: Female

DRUGS (4)
  1. CEFTRIAXONE. [Concomitant]
     Active Substance: CEFTRIAXONE
     Indication: DEVICE RELATED INFECTION
     Dosage: 6 WEEK COURSE, PARENTERAL
     Route: 065
  2. CEFTRIAXONE. [Concomitant]
     Active Substance: CEFTRIAXONE
     Indication: EVIDENCE BASED TREATMENT
  3. VANCOMYCIN INJECTION, USP [Suspect]
     Active Substance: VANCOMYCIN
     Indication: DEVICE RELATED INFECTION
     Dosage: 6 WEEK COURSE, 9 DAYS INTO THERAPY, PATIENT EXPERIENCED ADVERSE EVENT SO WAS DISCONTINUED IN BETWEEN
     Route: 065
  4. VANCOMYCIN INJECTION, USP [Suspect]
     Active Substance: VANCOMYCIN
     Indication: EVIDENCE BASED TREATMENT

REACTIONS (1)
  - Linear IgA disease [Recovered/Resolved]
